FAERS Safety Report 9754527 (Version 3)
Quarter: 2014Q1

REPORT INFORMATION
  Report Type: Spontaneous
  Country: GB (occurrence: GB)
  Receive Date: 20131213
  Receipt Date: 20140320
  Transmission Date: 20141002
  Serious: Yes (Hospitalization, Other)
  Sender: FDA-Public Use
  Company Number: GB-UCBSA-105543

PATIENT
  Sex: Female

DRUGS (15)
  1. NEUPRO [Suspect]
     Indication: PARKINSON^S DISEASE
     Dosage: 6 MG/24 HOURS PATCHES
     Route: 061
  2. STALEVO [Concomitant]
  3. BISOPROLOL [Concomitant]
  4. ASPIRIN [Concomitant]
  5. FERROUS FUMERATE [Concomitant]
  6. FOLIC ACID [Concomitant]
  7. PERINDOPRIL [Concomitant]
  8. CLOPIDOGREL [Concomitant]
  9. FUROSEMIDE [Concomitant]
  10. LANSOPRAZOLE [Concomitant]
  11. CLARITHROMYCIN [Concomitant]
  12. AMOXICILLIN [Concomitant]
  13. AMLORRES [Concomitant]
  14. VITAMIN D+ CALCIUM [Concomitant]
  15. GLYCERYL TRINITRATE [Concomitant]

REACTIONS (5)
  - Radius fracture [Unknown]
  - Acute myocardial infarction [Recovered/Resolved]
  - Lower respiratory tract infection [Recovered/Resolved]
  - Myocardial ischaemia [Unknown]
  - Expired drug administered [Unknown]
